FAERS Safety Report 4441454-4 (Version None)
Quarter: 2004Q3

REPORT INFORMATION
  Report Type: 
  Country: None (occurrence: None)
  Receive Date: 20040728
  Receipt Date: 20040503
  Transmission Date: 20050211
  Serious: No
  Sender: FDA-Public Use
  Company Number: USA040566575

PATIENT
  Age: 7 Year
  Sex: Male
  Weight: 23 kg

DRUGS (3)
  1. STRATTERA [Suspect]
     Indication: AUTISM
     Dosage: 40 MG DAY
  2. CLONIDINE HCL [Concomitant]
  3. ZYRTEC [Concomitant]

REACTIONS (3)
  - DRUG INEFFECTIVE [None]
  - PRESCRIBED OVERDOSE [None]
  - VOMITING [None]
